FAERS Safety Report 8308005-5 (Version None)
Quarter: 2012Q2

REPORT INFORMATION
  Report Type: 
  Country: None (occurrence: None)
  Receive Date: 20120424
  Receipt Date: 20120418
  Transmission Date: 20120825
  Serious: Yes (Hospitalization)
  Sender: FDA-Public Use
  Company Number: JP-GLAXOSMITHKLINE-B0797274A

PATIENT
  Age: 12 Year
  Sex: Female

DRUGS (2)
  1. RELENZA [Suspect]
     Route: 055
     Dates: start: 20120401
  2. RELENZA [Suspect]
     Indication: INFLUENZA
     Route: 055
     Dates: start: 20120101

REACTIONS (2)
  - NAUSEA [None]
  - DECREASED APPETITE [None]
